FAERS Safety Report 4321184-X (Version None)
Quarter: 2004Q1

REPORT INFORMATION
  Report Type: 
  Country: None (occurrence: None)
  Receive Date: 20040322
  Receipt Date: 20030407
  Transmission Date: 20041129
  Serious: Yes (Hospitalization, Other)
  Sender: FDA-Public Use
  Company Number: WAES 0304USA00820

PATIENT
  Age: 75 Year
  Sex: Female
  Weight: 59 kg

DRUGS (6)
  1. TYLENOL (CAPLET) [Concomitant]
     Dates: start: 19950101
  2. ESTRADIOL [Concomitant]
     Indication: MENOPAUSE
     Route: 048
     Dates: start: 19980601
  3. SYNTHROID [Concomitant]
     Indication: HYPERTHYROIDISM
     Route: 048
     Dates: start: 19890101
  4. PROVERA [Concomitant]
     Route: 048
     Dates: start: 19970501
  5. VIOXX [Suspect]
     Indication: OSTEOARTHRITIS
     Route: 048
     Dates: start: 19991101, end: 20000101
  6. VIOXX [Suspect]
     Route: 048
     Dates: end: 20010101

REACTIONS (29)
  - ACUTE MYOCARDIAL INFARCTION [None]
  - ARTHRALGIA [None]
  - ATRIOVENTRICULAR BLOCK COMPLETE [None]
  - CERVICAL DYSPLASIA [None]
  - COMPRESSION FRACTURE [None]
  - CORONARY ARTERY DISEASE [None]
  - CORONARY ARTERY OCCLUSION [None]
  - ELECTROCARDIOGRAM ST SEGMENT ELEVATION [None]
  - FALL [None]
  - HAEMATURIA [None]
  - HYPERTENSION [None]
  - HYPOTHYROIDISM [None]
  - INTERVERTEBRAL DISC DEGENERATION [None]
  - NAUSEA [None]
  - OSTEOARTHRITIS [None]
  - RASH [None]
  - RECTAL HAEMORRHAGE [None]
  - ROAD TRAFFIC ACCIDENT [None]
  - SCOLIOSIS [None]
  - SINUS BRADYCARDIA [None]
  - SPINAL COLUMN STENOSIS [None]
  - SPINAL COMPRESSION FRACTURE [None]
  - SPONDYLOSIS [None]
  - TOE DEFORMITY [None]
  - URINARY TRACT INFECTION [None]
  - UTERINE LEIOMYOMA [None]
  - VAGINITIS ATROPHIC [None]
  - VENTRICULAR ASYSTOLE [None]
  - VENTRICULAR FIBRILLATION [None]
